FAERS Safety Report 10911812 (Version 3)
Quarter: 2016Q1

REPORT INFORMATION
  Report Type: Spontaneous
  Country: GB (occurrence: CY)
  Receive Date: 20150313
  Receipt Date: 20160303
  Transmission Date: 20160525
  Serious: Yes (Disabling, Other)
  Sender: FDA-Public Use
  Company Number: GB-AUROBINDO-AUR-APL-2015-01968

PATIENT

DRUGS (1)
  1. PRAMIPEXOLE TABLET [Suspect]
     Active Substance: PRAMIPEXOLE
     Indication: RESTLESS LEGS SYNDROME
     Dosage: 1 DF, AT BED TIME
     Route: 048

REACTIONS (6)
  - Abasia [Not Recovered/Not Resolved]
  - Peripheral swelling [Not Recovered/Not Resolved]
  - Depressed mood [Unknown]
  - Pain in extremity [Not Recovered/Not Resolved]
  - Wheelchair user [Unknown]
  - Arthralgia [Not Recovered/Not Resolved]

NARRATIVE: CASE EVENT DATE: 20141204
